FAERS Safety Report 7610217-0 (Version None)
Quarter: 2011Q3

REPORT INFORMATION
  Report Type: 
  Country: None (occurrence: None)
  Receive Date: 20110715
  Receipt Date: 20110706
  Transmission Date: 20111222
  Serious: Yes (Life-Threatening, Hospitalization)
  Sender: FDA-Public Use
  Company Number: FR-BRISTOL-MYERS SQUIBB COMPANY-14132450

PATIENT
  Age: 37 Year
  Sex: Female

DRUGS (12)
  1. PIPORTIL [Concomitant]
  2. HALDOL [Concomitant]
  3. ABILIFY [Concomitant]
  4. GLUCOPHAGE [Suspect]
     Route: 048
     Dates: start: 20040101
  5. ZOLPIDEM [Concomitant]
  6. PROZAC [Concomitant]
  7. AMARYL [Suspect]
     Route: 048
     Dates: start: 20040401
  8. TRIMEPRAZINE TARTRATE [Concomitant]
  9. PRAZEPAM [Concomitant]
  10. MEDIATOR [Suspect]
     Route: 048
     Dates: start: 20020101, end: 20021231
  11. OXAZEPAM [Concomitant]
  12. DEPAKOTE [Concomitant]

REACTIONS (4)
  - PULMONARY ARTERIAL HYPERTENSION [None]
  - INTERSTITIAL LUNG DISEASE [None]
  - RADIATION PERICARDITIS [None]
  - PULMONARY EMBOLISM [None]
